FAERS Safety Report 7979694-X (Version None)
Quarter: 2011Q4

REPORT INFORMATION
  Report Type: 
  Country: None (occurrence: None)
  Receive Date: 20111214
  Receipt Date: 20111129
  Transmission Date: 20120403
  Serious: Yes (Hospitalization)
  Sender: FDA-Public Use
  Company Number: CA-ROCHE-1017527

PATIENT
  Age: 51 Year
  Sex: Male

DRUGS (2)
  1. VEMURAFENIB [Suspect]
     Indication: METASTATIC MALIGNANT MELANOMA
     Route: 048
     Dates: start: 20110815, end: 20111126
  2. MAXERAN [Concomitant]
     Dates: start: 20111123

REACTIONS (1)
  - DEHYDRATION [None]
